FAERS Safety Report 22852268 (Version 5)
Quarter: 2024Q1

REPORT INFORMATION
  Report Type: Report from Study
  Country: MX (occurrence: MX)
  Receive Date: 20230823
  Receipt Date: 20240103
  Transmission Date: 20240410
  Serious: Yes (Life-Threatening, Hospitalization, Other)
  Sender: FDA-Public Use
  Company Number: MX-002147023-NVSC2023MX182046

PATIENT
  Age: 57 Year
  Sex: Male
  Weight: 89 kg

DRUGS (12)
  1. ENTRESTO [Suspect]
     Active Substance: SACUBITRIL\VALSARTAN
     Indication: Cardiac failure
     Dosage: 100 MG, Q12H
     Route: 048
     Dates: start: 202303, end: 20231124
  2. METFORMIN [Concomitant]
     Active Substance: METFORMIN HYDROCHLORIDE
     Indication: Product used for unknown indication
     Dosage: 850 MG, Q24H (TAKING ONE UNIT EVERY 24 HOURS)
     Route: 065
  3. OMEPRAZOLE [Concomitant]
     Active Substance: OMEPRAZOLE
     Indication: Product used for unknown indication
     Dosage: 20 MG, Q24H (TAKING ONE UNIT EVERY 24 HOURS)
     Route: 065
  4. ASPIRIN [Concomitant]
     Active Substance: ASPIRIN
     Indication: Product used for unknown indication
     Dosage: 300 MG, Q24H (TAKING ONE UNIT EVERY 24 HOURS)
     Route: 065
  5. CLOPIDOGREL [Concomitant]
     Active Substance: CLOPIDOGREL BISULFATE
     Indication: Product used for unknown indication
     Dosage: 75 MG, Q24H ( TAKING ONE UNIT EVERY 24 HOURS)
     Route: 065
  6. METOPROLOL [Concomitant]
     Active Substance: METOPROLOL
     Indication: Product used for unknown indication
     Dosage: 100 MG, Q24H (QUARTER OF A ?PILL? EVERY 24 HOURS)
     Route: 065
  7. FINASTERIDE [Concomitant]
     Active Substance: FINASTERIDE
     Indication: Product used for unknown indication
     Dosage: 1 DOSAGE FORM, Q24H (TAKING ONE EVERY 24 HOURS)
     Route: 065
  8. FINASTERIDE [Concomitant]
     Active Substance: FINASTERIDE
     Dosage: 5 MG, Q24H ( TAKING ONE UNIT EVERY 24 HOURS)
     Route: 065
  9. ATORVASTATIN [Concomitant]
     Active Substance: ATORVASTATIN
     Indication: Product used for unknown indication
     Dosage: 2 DOSAGE FORM, Q24H (TAKING TWO TABLETS EVERY 24 HOURS)
     Route: 065
  10. TAMSULOSIN [Concomitant]
     Active Substance: TAMSULOSIN
     Indication: Product used for unknown indication
     Dosage: 0.4 MG, Q24H ( TAKING ONE UNIT EVERY 24 HOURS)
     Route: 065
  11. SCOPOLAMINE [Concomitant]
     Active Substance: SCOPOLAMINE
     Indication: Product used for unknown indication
     Dosage: UNK (IN THE MORNINGS)
     Route: 065
  12. FLUONING [Concomitant]
     Indication: Product used for unknown indication
     Dosage: UNK (IN THE MORNINGS)
     Route: 065

REACTIONS (18)
  - Venous occlusion [Unknown]
  - Infarction [Recovered/Resolved]
  - Urinary tract obstruction [Recovered/Resolved]
  - Prostatic disorder [Unknown]
  - Fatigue [Unknown]
  - Ill-defined disorder [Unknown]
  - Road traffic accident [Unknown]
  - Fear [Recovered/Resolved]
  - Malaise [Unknown]
  - Chest pain [Recovering/Resolving]
  - Dyspnoea [Recovering/Resolving]
  - Stress [Unknown]
  - Burning sensation [Not Recovered/Not Resolved]
  - Prostatic pain [Not Recovered/Not Resolved]
  - Prostatomegaly [Unknown]
  - Hypoaesthesia [Recovering/Resolving]
  - Constipation [Unknown]
  - Weight decreased [Unknown]

NARRATIVE: CASE EVENT DATE: 20230301
